FAERS Safety Report 9636721 (Version 1)
Quarter: 2013Q4

REPORT INFORMATION
  Report Type: Spontaneous
  Country: GB (occurrence: GB)
  Receive Date: 20131022
  Receipt Date: 20131022
  Transmission Date: 20140711
  Serious: Yes (Other)
  Sender: FDA-Public Use
  Company Number: GB-ACCORD-019883

PATIENT
  Age: 49 Year
  Sex: Male
  Weight: 80 kg

DRUGS (4)
  1. MONTELUKAST [Suspect]
     Indication: ASTHMA
     Route: 048
     Dates: start: 20120814
  2. OMEPRAZOLE [Concomitant]
     Indication: DYSPEPSIA
     Route: 048
     Dates: start: 20130617
  3. SERETIDE [Concomitant]
     Indication: ASTHMA
     Dosage: 125/25 MCG
     Route: 055
     Dates: start: 20091112
  4. HYDROXYZINE [Concomitant]
     Indication: SLEEP DISORDER
     Route: 048
     Dates: start: 20110812

REACTIONS (1)
  - Gingival recession [Not Recovered/Not Resolved]
